FAERS Safety Report 4446254-7 (Version None)
Quarter: 2004Q3

REPORT INFORMATION
  Report Type: 
  Country: None (occurrence: None)
  Receive Date: 20040907
  Receipt Date: 20040823
  Transmission Date: 20050211
  Serious: Yes (Death)
  Sender: FDA-Public Use
  Company Number: 04P-163-0271348-00

PATIENT
  Age: 34 Year
  Sex: Female

DRUGS (9)
  1. NORVIR [Suspect]
     Indication: HIV INFECTION
     Dosage: 100 MG , 1 IN 1 D, PER ORAL
     Route: 048
     Dates: start: 20040408, end: 20040807
  2. TENOFOVIR [Concomitant]
  3. ENFUVIRTIDE [Concomitant]
  4. LAMIVUDINE [Concomitant]
  5. BACTRIM [Concomitant]
  6. AZITHROMYCIN [Concomitant]
  7. TMC114 [Concomitant]
  8. LEVOFLOXACIN [Concomitant]
  9. IBUPROFEN [Concomitant]

REACTIONS (21)
  - ANAEMIA [None]
  - BACK PAIN [None]
  - CARDIAC MURMUR [None]
  - COUGH [None]
  - DIZZINESS [None]
  - DYSPNOEA [None]
  - EMBOLISM [None]
  - ENDOCARDITIS [None]
  - GASTROINTESTINAL HAEMORRHAGE [None]
  - HAEMATURIA [None]
  - HEADACHE [None]
  - INFECTION [None]
  - INFLAMMATION [None]
  - MYOCARDIAL ISCHAEMIA [None]
  - OXYGEN SATURATION DECREASED [None]
  - PYREXIA [None]
  - STAPHYLOCOCCAL INFECTION [None]
  - STAPHYLOCOCCAL SEPSIS [None]
  - TACHYCARDIA [None]
  - THROMBOCYTOPENIA [None]
  - URINARY TRACT INFECTION [None]
